FAERS Safety Report 5347411-8 (Version None)
Quarter: 2007Q2

REPORT INFORMATION
  Report Type: 
  Country: None (occurrence: None)
  Receive Date: 20070507
  Receipt Date: 20060508
  Transmission Date: 20071010
  Serious: Yes (Hospitalization)
  Sender: FDA-Public Use
  Company Number: 2185

PATIENT
  Sex: Male

DRUGS (1)
  1. AVINZA [Suspect]
     Indication: PAIN

REACTIONS (1)
  - VOMITING [None]
